FAERS Safety Report 8608868-X (Version None)
Quarter: 2012Q3

REPORT INFORMATION
  Report Type: 
  Country: None (occurrence: None)
  Receive Date: 20120821
  Receipt Date: 20120814
  Transmission Date: 20120928
  Serious: Yes (Hospitalization)
  Sender: FDA-Public Use
  Company Number: CO-PFIZER INC-2012200916

PATIENT
  Age: 16 Year
  Sex: Male

DRUGS (5)
  1. FOLIC ACID [Concomitant]
  2. FLUOXETINE [Concomitant]
     Dosage: UNK
     Dates: start: 20070101
  3. GENOTROPIN [Suspect]
     Indication: GROWTH HORMONE DEFICIENCY
     Dosage: UNK
     Dates: start: 20111201
  4. HYDROXYUREA [Concomitant]
     Indication: SICKLE CELL ANAEMIA
     Dosage: UNK
     Dates: start: 20070101
  5. IMIPRAMINE [Concomitant]
     Dosage: UNK
     Dates: start: 20090101

REACTIONS (1)
  - SICKLE CELL ANAEMIA WITH CRISIS [None]
